FAERS Safety Report 9656052 (Version 1)
Quarter: 2013Q4

REPORT INFORMATION
  Report Type: Spontaneous
  Country: US (occurrence: None)
  Receive Date: 20131029
  Receipt Date: 20131029
  Transmission Date: 20140711
  Serious: No
  Sender: FDA-Public Use
  Company Number: None

PATIENT
  Age: 30 Year
  Sex: Female
  Weight: 71.22 kg

DRUGS (1)
  1. MINASTRIN 24 FE WARNER CHILCOTT [Suspect]
     Indication: CONTRACEPTION
     Dosage: 28 PILLS ONCE DAILY TAKEN BY MOUTH
     Route: 048
     Dates: start: 20131006, end: 20131017

REACTIONS (11)
  - Abdominal pain [None]
  - Mood altered [None]
  - Tearfulness [None]
  - Anxiety [None]
  - Depression [None]
  - Abdominal distension [None]
  - Breast tenderness [None]
  - Libido decreased [None]
  - Weight increased [None]
  - Product quality issue [None]
  - Product substitution issue [None]
